FAERS Safety Report 10180596 (Version 1)
Quarter: 2014Q2

REPORT INFORMATION
  Report Type: Report from Study
  Country: US (occurrence: US)
  Receive Date: 20140519
  Receipt Date: 20140519
  Transmission Date: 20141212
  Serious: Yes (Other)
  Sender: FDA-Public Use
  Company Number: US-ABBVIE-14P-163-1236575-00

PATIENT
  Age: 53 Year
  Sex: Female
  Weight: 70.37 kg

DRUGS (13)
  1. HUMIRA [Suspect]
     Indication: COLITIS ULCERATIVE
     Dates: start: 20130404, end: 201310
  2. HUMIRA [Suspect]
     Dates: start: 201310
  3. CURCUMIN [Concomitant]
     Indication: INFLAMMATORY BOWEL DISEASE
  4. OMEGA XL [Concomitant]
     Indication: NUTRITIONAL SUPPLEMENTATION
     Dosage: 2-4 TABLETS
  5. VITAMIN D AND ANALOGUES [Concomitant]
     Indication: PRODUCT USED FOR UNKNOWN INDICATION
  6. B12/B6/FOLIC ACID [Concomitant]
     Indication: PRODUCT USED FOR UNKNOWN INDICATION
  7. CALCIUM WITH VITAMIN D GUMMY CHEW [Concomitant]
     Indication: PRODUCT USED FOR UNKNOWN INDICATION
     Dosage: DEPENDING OM WHAT FOOD SHE EATS
  8. TROPICAL PAPAYA [Concomitant]
     Indication: ENZYME SUPPLEMENTATION
     Dosage: 4 CHEWS AFTER MEALS
  9. IRON [Concomitant]
     Indication: PRODUCT USED FOR UNKNOWN INDICATION
     Dosage: DEPENDING ON WHAT FOOD SHE EATS
  10. COQ10 [Concomitant]
     Indication: SUPPLEMENTATION THERAPY
  11. SUSTENEX [Concomitant]
     Indication: COLITIS ULCERATIVE
  12. SAM-E [Concomitant]
     Indication: STRESS
  13. SAM-E [Concomitant]
     Indication: ARTHROPATHY

REACTIONS (6)
  - Ligament rupture [Not Recovered/Not Resolved]
  - Fall [Not Recovered/Not Resolved]
  - Drug effect incomplete [Not Recovered/Not Resolved]
  - Diarrhoea [Not Recovered/Not Resolved]
  - Anxiety [Not Recovered/Not Resolved]
  - Upper limb fracture [Not Recovered/Not Resolved]
